FAERS Safety Report 9518164 (Version 1)
Quarter: 2013Q3

REPORT INFORMATION
  Report Type: Spontaneous
  Country: US (occurrence: None)
  Receive Date: 20130910
  Receipt Date: 20130910
  Transmission Date: 20140515
  Serious: Yes (Other)
  Sender: FDA-Public Use
  Company Number: None

PATIENT
  Age: 34 Year
  Sex: Female
  Weight: 68.04 kg

DRUGS (1)
  1. ZYRTEC [Suspect]
     Indication: MULTIPLE ALLERGIES
     Dosage: SEVERAL YEARS

REACTIONS (7)
  - Therapy cessation [None]
  - Insomnia [None]
  - Hyperaesthesia [None]
  - Skin irritation [None]
  - Activities of daily living impaired [None]
  - Hypersensitivity [None]
  - Drug withdrawal syndrome [None]
